FAERS Safety Report 5027841-4 (Version None)
Quarter: 2006Q2

REPORT INFORMATION
  Report Type: 
  Country: None (occurrence: None)
  Receive Date: 20060616
  Receipt Date: 20060522
  Transmission Date: 20061013
  Serious: Yes (Other)
  Sender: FDA-Public Use
  Company Number: 2006AP02331

PATIENT
  Age: 31446 Day
  Sex: Male

DRUGS (5)
  1. OMEPRAL [Suspect]
     Indication: REFLUX OESOPHAGITIS
     Route: 048
     Dates: start: 20040625, end: 20060421
  2. LENDORMIN D [Concomitant]
     Indication: INSOMNIA
     Route: 048
     Dates: start: 20040127
  3. DAONIL [Concomitant]
     Indication: DIABETES MELLITUS
     Route: 048
     Dates: start: 20050412
  4. MIYA BM [Concomitant]
     Indication: GASTROENTERITIS
     Route: 048
     Dates: start: 20060116
  5. MAGNESIUM OXIDE [Concomitant]
     Indication: GASTROENTERITIS
     Route: 048
     Dates: start: 20060116

REACTIONS (1)
  - PANCYTOPENIA [None]
